FAERS Safety Report 19615147 (Version 1)
Quarter: 2021Q3

REPORT INFORMATION
  Report Type: Spontaneous
  Country: NL (occurrence: FR)
  Receive Date: 20210727
  Receipt Date: 20210727
  Transmission Date: 20211014
  Serious: Yes (Life-Threatening)
  Sender: FDA-Public Use
  Company Number: FR-FRESENIUS KABI-FK202107540

PATIENT
  Age: 74 Year
  Sex: Male

DRUGS (2)
  1. PROPOFOL (MANUFACTURER UNKNOWN) [Suspect]
     Active Substance: PROPOFOL
     Indication: ANAESTHESIA
     Dosage: INCONNUE // UNKNOWN
     Route: 042
     Dates: start: 20210615, end: 20210615
  2. SUXAMETHONIUM IODIDE [Suspect]
     Active Substance: SUCCINYLCHOLINE IODIDE
     Indication: ANAESTHESIA
     Dosage: INCONNUE // UNKNOWN
     Route: 042
     Dates: start: 20210615, end: 20210615

REACTIONS (1)
  - Anaphylactic shock [Recovered/Resolved]

NARRATIVE: CASE EVENT DATE: 20210615
